FAERS Safety Report 25323148 (Version 1)
Quarter: 2025Q2

REPORT INFORMATION
  Report Type: Report from Study
  Country: JP (occurrence: JP)
  Receive Date: 20250516
  Receipt Date: 20250516
  Transmission Date: 20250716
  Serious: Yes (Death)
  Sender: GILEAD
  Company Number: JP-GILEAD-2025-0713621

PATIENT

DRUGS (2)
  1. REMDESIVIR [Suspect]
     Active Substance: REMDESIVIR
     Indication: COVID-19
     Route: 065
  2. REMDESIVIR [Suspect]
     Active Substance: REMDESIVIR
     Route: 065

REACTIONS (2)
  - Lung disorder [Fatal]
  - Intentional product use issue [Unknown]
